FAERS Safety Report 9818296 (Version 1)
Quarter: 2014Q1

REPORT INFORMATION
  Report Type: Spontaneous
  Country: US (occurrence: None)
  Receive Date: 20140113
  Receipt Date: 20140113
  Transmission Date: 20141002
  Serious: Yes (Hospitalization)
  Sender: FDA-Public Use
  Company Number: None

PATIENT
  Age: 56 Year
  Sex: Male
  Weight: 106.5 kg

DRUGS (1)
  1. BACITRACIN [Suspect]
     Indication: THERAPEUTIC PROCEDURE
     Dates: start: 20131009, end: 20131009

REACTIONS (7)
  - Erythema [None]
  - Angioedema [None]
  - Dysphonia [None]
  - Rash [None]
  - Urticaria [None]
  - Pruritus [None]
  - Respiratory distress [None]
